FAERS Safety Report 5902110-6 (Version None)
Quarter: 2008Q3

REPORT INFORMATION
  Report Type: 
  Country: None (occurrence: None)
  Receive Date: 20080929
  Receipt Date: 20080919
  Transmission Date: 20090109
  Serious: Yes (Death, Other)
  Sender: FDA-Public Use
  Company Number: FR-PFIZER INC-2008075614

PATIENT
  Sex: Female

DRUGS (6)
  1. TAHOR [Suspect]
     Indication: CORONARY ARTERY DISEASE
  2. INSULIN GLARGINE [Concomitant]
  3. PAROXETINE HYDROCHLORIDE [Concomitant]
  4. BISOPROLOL FUMARATE [Concomitant]
  5. ALL OTHER THERAPEUTIC PRODUCTS [Concomitant]
  6. REPAGLINIDE [Concomitant]

REACTIONS (9)
  - ANOREXIA [None]
  - ARTHRALGIA [None]
  - BLOOD CHOLESTEROL INCREASED [None]
  - BLOOD PRESSURE INCREASED [None]
  - CONSTIPATION [None]
  - DRUG INEFFECTIVE [None]
  - FATIGUE [None]
  - SYNCOPE [None]
  - THROMBOSIS [None]
